FAERS Safety Report 7433391-8 (Version None)
Quarter: 2011Q2

REPORT INFORMATION
  Report Type: 
  Country: None (occurrence: None)
  Receive Date: 20110422
  Receipt Date: 20110414
  Transmission Date: 20111010
  Serious: Yes (Death)
  Sender: FDA-Public Use
  Company Number: AR-GENZYME-CLOF-1001563

PATIENT
  Age: 16 Year
  Sex: Male

DRUGS (4)
  1. CLOLAR [Suspect]
     Indication: ACUTE LYMPHOCYTIC LEUKAEMIA
     Dosage: UNK
     Route: 065
  2. CYCLOPHOSPHAMIDE [Suspect]
     Indication: ACUTE LYMPHOCYTIC LEUKAEMIA
     Dosage: UNK
     Route: 065
  3. CLOLAR [Suspect]
     Dosage: 52 MG/M2, UNK
     Route: 065
  4. ETOPOSIDE [Suspect]
     Indication: ACUTE LYMPHOCYTIC LEUKAEMIA
     Dosage: UNK
     Route: 065

REACTIONS (2)
  - DRUG INEFFECTIVE [None]
  - ACUTE LYMPHOCYTIC LEUKAEMIA [None]
